FAERS Safety Report 6659671-1 (Version None)
Quarter: 2010Q1

REPORT INFORMATION
  Report Type: 
  Country: None (occurrence: None)
  Receive Date: 20100330
  Receipt Date: 20100323
  Transmission Date: 20100710
  Serious: Yes (Death, Hospitalization, Other)
  Sender: FDA-Public Use
  Company Number: NO-AMGEN-QUU401245

PATIENT
  Sex: Male

DRUGS (5)
  1. NEULASTA [Suspect]
     Indication: CHEMOTHERAPY
     Route: 065
  2. MABTHERA [Suspect]
  3. MITOXANTRONE [Suspect]
  4. VINCRISTINE [Suspect]
  5. SENDOXAN [Concomitant]

REACTIONS (2)
  - DEATH [None]
  - PNEUMONITIS [None]
